FAERS Safety Report 8401921-5 (Version None)
Quarter: 2012Q2

REPORT INFORMATION
  Report Type: 
  Country: None (occurrence: None)
  Receive Date: 20120601
  Receipt Date: 20120523
  Transmission Date: 20120825
  Serious: Yes (Hospitalization)
  Sender: FDA-Public Use
  Company Number: US-JNJFOC-20120401765

PATIENT
  Sex: Male
  Weight: 90.72 kg

DRUGS (8)
  1. METHOTREXATE [Concomitant]
     Indication: RHEUMATOID ARTHRITIS
     Route: 048
  2. FOLIC ACID [Concomitant]
     Indication: RHEUMATOID ARTHRITIS
     Route: 048
  3. KLONOPIN [Concomitant]
     Indication: FEELING OF RELAXATION
     Route: 048
  4. SIMVASTATIN [Concomitant]
     Indication: BLOOD CHOLESTEROL
     Route: 048
  5. REMICADE [Suspect]
     Indication: RHEUMATOID ARTHRITIS
     Route: 042
     Dates: start: 20110101, end: 20120301
  6. METFORMIN HCL [Concomitant]
     Indication: DIABETES MELLITUS
     Dosage: DOSE STRENGTH:1000MG
     Route: 048
  7. TRADJENTA [Concomitant]
     Indication: DIABETES MELLITUS
     Route: 048
  8. ASPIRIN [Concomitant]
     Indication: PROPHYLAXIS
     Route: 048

REACTIONS (6)
  - ARTERIAL OCCLUSIVE DISEASE [None]
  - PAIN [None]
  - VIITH NERVE PARALYSIS [None]
  - SWELLING [None]
  - INFECTION [None]
  - HEADACHE [None]
